FAERS Safety Report 12395764 (Version 1)
Quarter: 2016Q2

REPORT INFORMATION
  Report Type: Spontaneous
  Country: US (occurrence: US)
  Receive Date: 20160523
  Receipt Date: 20160523
  Transmission Date: 20160815
  Serious: No
  Sender: FDA-Public Use
  Company Number: US-BANPHARM-20154283

PATIENT
  Age: 55 Year
  Sex: Male
  Weight: 64.41 kg

DRUGS (6)
  1. PRIMIDONE 50MG [Concomitant]
     Active Substance: PRIMIDONE
     Indication: EPILEPSY
  2. LOSARTAN 12.5MG [Concomitant]
     Indication: HYPERTENSION
  3. PANTOPRAZOLE 40MG [Concomitant]
     Active Substance: PANTOPRAZOLE SODIUM
     Indication: COLITIS
  4. AZATHIOPRINE 125MG [Concomitant]
     Indication: COLITIS
  5. DYLANTIN 200MG [Concomitant]
     Indication: EPILEPSY
  6. MOTRIN IB [Suspect]
     Active Substance: IBUPROFEN
     Route: 048
     Dates: start: 20150924, end: 20150924

REACTIONS (1)
  - Drug ineffective [Unknown]
